FAERS Safety Report 15839493 (Version 1)
Quarter: 2019Q1

REPORT INFORMATION
  Report Type: Spontaneous
  Country: GB (occurrence: GB)
  Receive Date: 20190117
  Receipt Date: 20190117
  Transmission Date: 20190417
  Serious: Yes (Other)
  Sender: FDA-Public Use
  Company Number: GB-MYLANLABS-2019M1004162

PATIENT
  Age: 83 Year
  Sex: Female
  Weight: 67 kg

DRUGS (16)
  1. ACETYLSALICYLIC ACID [Concomitant]
     Active Substance: ASPIRIN
     Dosage: 1 DOSAGE FORM, QD
     Route: 065
     Dates: start: 20180118
  2. RANITIDINE. [Concomitant]
     Active Substance: RANITIDINE
     Dosage: UNK, (ONE OR TWO A DAY)
     Route: 065
     Dates: start: 20180118
  3. IBUPROFEN. [Concomitant]
     Active Substance: IBUPROFEN
     Dosage: 3 DOSAGE FORM, QD
     Dates: start: 20180123
  4. FLUTICASONE. [Concomitant]
     Active Substance: FLUTICASONE
     Dosage: UNK UNK, BID, (TRY TO REDUCE DOSE TO ONE PUFF TWICE DAILY. SEE...)
     Route: 065
     Dates: start: 20180118
  5. BECONASE AQ [Concomitant]
     Active Substance: BECLOMETHASONE DIPROPIONATE MONOHYDRATE
     Dosage: PUFFS.
     Route: 065
     Dates: start: 20170927
  6. PARACETAMOL [Concomitant]
     Active Substance: ACETAMINOPHEN
     Dosage: UNK, (TAKE 1 OR 2 FOUR TIMES A DAY WHEN REQUIRED.)
     Route: 065
     Dates: start: 20180118
  7. ELOCON [Concomitant]
     Active Substance: MOMETASONE FUROATE
     Dosage: UNK, (APPLY DAILY AS REQUIRED-PLEASE MAKE AN APPT TO ...)
     Route: 065
     Dates: start: 20170927
  8. SALBUTAMOL [Concomitant]
     Active Substance: ALBUTEROL
     Dosage: 2 DOSAGE FORM, (AS NECESSARY)
     Route: 055
     Dates: start: 20170927
  9. METFORMIN [Concomitant]
     Active Substance: METFORMIN HYDROCHLORIDE
     Dosage: 2 DOSAGE FORM, QD
     Route: 065
     Dates: start: 20180118
  10. ADCAL                              /00056901/ [Concomitant]
     Active Substance: CARBAZOCHROME
     Dosage: 2 DOSAGE FORM, QD
     Route: 065
     Dates: start: 20180118
  11. LEVOTHYROXINE. [Concomitant]
     Active Substance: LEVOTHYROXINE
     Dosage: 1 DOSAGE FORM, QD, (MORNING)
     Route: 065
     Dates: start: 20180118
  12. QUININE [Concomitant]
     Active Substance: QUININE
     Dosage: UNK UNK, QD, (USE AS DIRECTED OCCASIONALLY AT NIGHT FOR MUSCL...)
     Route: 065
     Dates: start: 20180118
  13. SIMVASTATIN. [Concomitant]
     Active Substance: SIMVASTATIN
     Dosage: 1 DOSAGE FORM, QD, (NIGHT)
     Route: 065
     Dates: start: 20180118
  14. AMLODIPINE [Suspect]
     Active Substance: AMLODIPINE BESYLATE
     Indication: PRODUCT USED FOR UNKNOWN INDICATION
     Dosage: UNK
     Route: 065
     Dates: start: 20180509
  15. FERROUS FUMARATE [Concomitant]
     Active Substance: FERROUS FUMARATE
     Dosage: 1 DOSAGE FORM, QD, (FOR AT LEAST 6 MONTHS)
     Route: 065
     Dates: start: 20180118
  16. UREA. [Concomitant]
     Active Substance: UREA
     Indication: ECZEMA
     Dosage: UNK, (APPLY AS DIRECTED)
     Route: 065
     Dates: start: 20170927

REACTIONS (1)
  - Dermatitis exfoliative [Unknown]

NARRATIVE: CASE EVENT DATE: 20180628
